FAERS Safety Report 13464596 (Version 1)
Quarter: 2017Q2

REPORT INFORMATION
  Report Type: Spontaneous
  Country: US (occurrence: US)
  Receive Date: 20170420
  Receipt Date: 20170420
  Transmission Date: 20170830
  Serious: Yes (Other)
  Sender: FDA-Public Use
  Company Number: US-ROCHE-683085

PATIENT
  Age: 16 Year
  Sex: Male
  Weight: 83.9 kg

DRUGS (10)
  1. ACCUTANE [Suspect]
     Active Substance: ISOTRETINOIN
     Indication: ACNE
     Route: 048
     Dates: start: 19971126, end: 199803
  2. ADVIL [Concomitant]
     Active Substance: IBUPROFEN
     Route: 065
  3. ACCUTANE [Suspect]
     Active Substance: ISOTRETINOIN
     Route: 048
     Dates: start: 199909, end: 199911
  4. ACCUTANE [Suspect]
     Active Substance: ISOTRETINOIN
     Route: 048
     Dates: start: 200111, end: 200205
  5. ACCUTANE [Suspect]
     Active Substance: ISOTRETINOIN
     Route: 048
     Dates: start: 200003, end: 200010
  6. ACCUTANE [Suspect]
     Active Substance: ISOTRETINOIN
     Route: 048
     Dates: start: 200208, end: 200304
  7. CLARAVIS [Suspect]
     Active Substance: ISOTRETINOIN
     Indication: ACNE
     Dosage: STRENGTH : 40 MG AND 20 MG
     Route: 048
     Dates: start: 20040421, end: 20040521
  8. ACCUTANE [Suspect]
     Active Substance: ISOTRETINOIN
     Route: 048
     Dates: start: 199903, end: 199906
  9. AMOXICILLIN. [Concomitant]
     Active Substance: AMOXICILLIN
     Indication: ACNE
     Route: 065
  10. DOXYCYCLINE. [Concomitant]
     Active Substance: DOXYCYCLINE
     Route: 065

REACTIONS (11)
  - Bronchitis [Unknown]
  - Pharyngitis [Unknown]
  - Ear disorder [Unknown]
  - Inflammatory bowel disease [Unknown]
  - Large intestinal ulcer [Unknown]
  - Skin papilloma [Recovered/Resolved]
  - Tonsillitis [Unknown]
  - Sinusitis [Unknown]
  - Arthralgia [Unknown]
  - Eye irritation [Unknown]
  - Upper respiratory tract infection [Unknown]

NARRATIVE: CASE EVENT DATE: 19971218
